FAERS Safety Report 8593955 (Version 3)
Quarter: 2013Q2

REPORT INFORMATION
  Report Type: Report from Study
  Country: US (occurrence: US)
  Receive Date: 20120604
  Receipt Date: 20130607
  Transmission Date: 20140414
  Serious: Yes (Hospitalization)
  Sender: FDA-Public Use
  Company Number: US-UCBSA-058272

PATIENT
  Age: 0 None
  Sex: Female
  Weight: 1.65 kg

DRUGS (28)
  1. CIMZIA [Suspect]
     Indication: CROHN^S DISEASE
     Route: 064
     Dates: start: 20100601, end: 20110105
  2. IVIG [Suspect]
     Indication: AMYOTROPHIC LATERAL SCLEROSIS
  3. PREDNISONE [Concomitant]
     Indication: CROHN^S DISEASE
     Route: 064
     Dates: start: 20090513, end: 20091111
  4. PREDNISONE [Concomitant]
     Indication: CROHN^S DISEASE
     Dosage: TAPER; 10MG DAILY
     Route: 064
     Dates: start: 20091118
  5. 6 MERCAPTOPURINE [Concomitant]
     Indication: CROHN^S DISEASE
     Route: 064
     Dates: start: 20100330, end: 20100422
  6. 6 MERCAPTOPURINE [Concomitant]
     Indication: CROHN^S DISEASE
     Route: 064
     Dates: start: 20100512
  7. LOMOTIL [Concomitant]
     Indication: CROHN^S DISEASE
     Route: 064
  8. B12 [Concomitant]
     Dosage: MONTHLY
     Route: 064
  9. ZOLOFT [Concomitant]
     Dosage: 200 MG DAILY
     Route: 064
  10. ZOFRAN [Concomitant]
     Indication: NAUSEA
     Dosage: ODT; 4MG ONCE EVERY 6 HOURS
     Route: 064
  11. SINGULAIR [Concomitant]
     Dosage: 10 MG DAILY
     Route: 064
  12. VISTARIL [Concomitant]
     Indication: ANXIETY
     Dosage: 25MG ONCE EVERY 6 HOURS
     Route: 064
  13. PHENERGAN [Concomitant]
     Indication: NAUSEA
     Route: 064
  14. ALEVE [Concomitant]
     Route: 064
  15. QUESTRAN [Concomitant]
     Dosage: DAILY DOSE: 4 G
     Route: 064
  16. BACLOFEN [Concomitant]
     Route: 064
  17. CLONAZEPAM [Concomitant]
     Dosage: TID
     Route: 064
  18. CYMBALTA [Concomitant]
     Dosage: 60 MG DAILY
     Route: 064
  19. NEXIUM [Concomitant]
     Dosage: 40MG DAILY
     Route: 064
  20. NUDEXTA [Concomitant]
     Route: 064
  21. TRIAMCINOLONE [Concomitant]
     Dosage: 0.1%
  22. CALCIUM CARBONATE [Concomitant]
     Route: 064
  23. PRENATAL VITAMIN [Concomitant]
     Route: 064
  24. FOLIC ACID [Concomitant]
     Indication: VITAMIN SUPPLEMENTATION
  25. SILVADINE [Concomitant]
     Dosage: 1%
     Route: 064
  26. MICRO K [Concomitant]
     Dosage: 20MEQ
     Route: 064
  27. ALBUTEROL [Concomitant]
     Dosage: Q6H; NEBULIZER
  28. LOVENOX [Concomitant]
     Dosage: DAILY
     Route: 064

REACTIONS (2)
  - Premature baby [Recovered/Resolved]
  - Foetal exposure during pregnancy [Recovered/Resolved]
